FAERS Safety Report 7017939-3 (Version None)
Quarter: 2010Q3

REPORT INFORMATION
  Report Type: 
  Country: None (occurrence: None)
  Receive Date: 20100928
  Receipt Date: 20100921
  Transmission Date: 20110219
  Serious: Yes (Hospitalization, Other)
  Sender: FDA-Public Use
  Company Number: BR-ABBOTT-10P-020-0653218-00

PATIENT
  Sex: Male
  Weight: 100 kg

DRUGS (7)
  1. HUMIRA [Suspect]
     Indication: PSORIATIC ARTHROPATHY
     Dosage: INDUCTION DOSE: 80MG; 40MG, 1 IN 14D
     Route: 058
     Dates: start: 20080801, end: 20100522
  2. CAPTOPRIL [Concomitant]
     Indication: HYPERTENSION
     Route: 048
     Dates: start: 20081201
  3. CAPTOPRIL [Concomitant]
     Route: 048
  4. ATENOLOL [Concomitant]
     Indication: HYPERTENSION
     Route: 048
     Dates: start: 20080101
  5. ATENOLOL [Concomitant]
     Route: 048
  6. AMLODIPINE [Concomitant]
     Indication: HYPERTENSION
     Route: 048
     Dates: start: 20100622
  7. CEPHALEXIN [Concomitant]
     Indication: PRODUCT USED FOR UNKNOWN INDICATION
     Route: 048
     Dates: start: 20100920

REACTIONS (7)
  - BLOOD PRESSURE ABNORMAL [None]
  - INFECTION [None]
  - INFLAMMATION [None]
  - MASTOIDITIS [None]
  - PSORIASIS [None]
  - SWELLING [None]
  - VIITH NERVE PARALYSIS [None]
